FAERS Safety Report 26054928 (Version 3)
Quarter: 2025Q4

REPORT INFORMATION
  Report Type: Spontaneous
  Country: EU (occurrence: EU)
  Receive Date: 20251117
  Receipt Date: 20251219
  Transmission Date: 20260117
  Serious: Yes (Other)
  Sender: INCYTE
  Company Number: EU-ROCHE-10000422963

PATIENT
  Age: 39 Year

DRUGS (8)
  1. RUXOLITINIB [Suspect]
     Active Substance: RUXOLITINIB
     Indication: Acute graft versus host disease
     Dosage: 20 MG, QD
     Route: 065
  2. MYCOPHENOLATE MOFETIL [Suspect]
     Active Substance: MYCOPHENOLATE MOFETIL
     Indication: Acute graft versus host disease
     Dosage: 2 G, QD
  3. RITUXIMAB [Suspect]
     Active Substance: RITUXIMAB
     Indication: Post transplant lymphoproliferative disorder
     Dosage: 700 MG
  4. RITUXIMAB [Suspect]
     Active Substance: RITUXIMAB
     Indication: Epstein-Barr virus infection
  5. METHYLPREDNISOLONE [Suspect]
     Active Substance: METHYLPREDNISOLONE
     Indication: Acute graft versus host disease
     Dosage: 2 MG/KG
  6. METHYLPREDNISOLONE [Suspect]
     Active Substance: METHYLPREDNISOLONE
     Dosage: 2 MG/KG
  7. GANCICLOVIR [Concomitant]
     Active Substance: GANCICLOVIR
     Indication: Cytomegalovirus infection reactivation
     Dosage: UNK
     Route: 065
  8. FOSCARNET [Concomitant]
     Active Substance: FOSCARNET
     Indication: Cytomegalovirus infection reactivation
     Dosage: UNK
     Route: 065

REACTIONS (5)
  - Post transplant lymphoproliferative disorder [Unknown]
  - Haemophagocytic lymphohistiocytosis [Unknown]
  - Septic shock [Unknown]
  - Epstein-Barr virus infection [Unknown]
  - Drug ineffective [Unknown]
